FAERS Safety Report 21483034 (Version 3)
Quarter: 2024Q2

REPORT INFORMATION
  Report Type: Spontaneous
  Country: GB (occurrence: GB)
  Receive Date: 20221020
  Receipt Date: 20240516
  Transmission Date: 20240715
  Serious: No
  Sender: FDA-Public Use
  Company Number: GB-CELLTRION INC.-2022GB016873

PATIENT

DRUGS (1)
  1. INFLIXIMAB [Suspect]
     Active Substance: INFLIXIMAB
     Indication: Erythema multiforme
     Dosage: 120MG PFP
     Route: 058
     Dates: start: 202210

REACTIONS (2)
  - Pharyngeal swelling [Unknown]
  - Off label use [Unknown]
